FAERS Safety Report 15279396 (Version 1)
Quarter: 2018Q3

REPORT INFORMATION
  Report Type: Spontaneous
  Country: NL (occurrence: NL)
  Receive Date: 20180815
  Receipt Date: 20180815
  Transmission Date: 20181010
  Serious: Yes (Hospitalization, Other)
  Sender: FDA-Public Use
  Company Number: NL-BAYER-2018-082443

PATIENT
  Age: 36 Year
  Sex: Female

DRUGS (6)
  1. VITAMIN B12 [Suspect]
     Active Substance: CYANOCOBALAMIN
     Dosage: UNK
     Route: 065
  2. NUVARING [Concomitant]
     Active Substance: ETHINYL ESTRADIOL\ETONOGESTREL
  3. CIPROFLOXACIN. [Suspect]
     Active Substance: CIPROFLOXACIN
     Indication: EAR DISORDER
     Dosage: UNK
     Route: 065
  4. NUVARING [Concomitant]
     Active Substance: ETHINYL ESTRADIOL\ETONOGESTREL
     Dosage: UNK
  5. NUVARING [Concomitant]
     Active Substance: ETHINYL ESTRADIOL\ETONOGESTREL
  6. COPAXONE [Suspect]
     Active Substance: GLATIRAMER ACETATE
     Dosage: UNK
     Route: 058
     Dates: start: 20170406, end: 20180408

REACTIONS (8)
  - Ear infection [Recovering/Resolving]
  - Anaphylactic shock [Recovered/Resolved]
  - Gait disturbance [Recovering/Resolving]
  - Generalised erythema [Unknown]
  - Swelling face [Unknown]
  - Feeling hot [Unknown]
  - Swollen tongue [Unknown]
  - Nausea [Unknown]

NARRATIVE: CASE EVENT DATE: 2018
